FAERS Safety Report 9349678 (Version 8)
Quarter: 2014Q4

REPORT INFORMATION
  Report Type: Spontaneous
  Country: US (occurrence: US)
  Receive Date: 20130614
  Receipt Date: 20141013
  Transmission Date: 20150529
  Serious: Yes (Hospitalization, Other)
  Sender: FDA-Public Use
  Company Number: US-009507513-1306USA006339

PATIENT
  Sex: Female
  Weight: 74.38 kg

DRUGS (3)
  1. FOSAMAX [Suspect]
     Active Substance: ALENDRONATE SODIUM
     Indication: OSTEOPOROSIS
     Dosage: UNK
     Route: 048
     Dates: start: 199801
  2. FOSAMAX [Suspect]
     Active Substance: ALENDRONATE SODIUM
     Dosage: 70 MG, UNK
     Route: 048
     Dates: start: 20020204, end: 20071129
  3. ALENDRONATE SODIUM. [Suspect]
     Active Substance: ALENDRONATE SODIUM
     Indication: OSTEOPOROSIS
     Dosage: 70 MG, QW
     Route: 048
     Dates: start: 20080313, end: 20120102

REACTIONS (37)
  - Femur fracture [Unknown]
  - Knee arthroplasty [Unknown]
  - Tinnitus [Unknown]
  - Spinal column stenosis [Unknown]
  - Radicular pain [Unknown]
  - Knee arthroplasty [Unknown]
  - Vaginal prolapse [Unknown]
  - Tonsillectomy [Unknown]
  - Osteoarthritis [Unknown]
  - Arthropathy [Unknown]
  - Osteoarthritis [Unknown]
  - Deafness [Unknown]
  - Atrophy [Unknown]
  - Memory impairment [Unknown]
  - Foot deformity [Unknown]
  - Blood albumin decreased [Unknown]
  - Exostosis [Unknown]
  - Knee arthroplasty [Unknown]
  - Mammogram abnormal [Unknown]
  - Osteopenia [Unknown]
  - Neuropathy peripheral [Unknown]
  - Alopecia [Unknown]
  - Joint arthroplasty [Unknown]
  - Hypertonic bladder [Unknown]
  - Hypertension [Unknown]
  - Oestrogen deficiency [Unknown]
  - Fluid retention [Unknown]
  - Back pain [Unknown]
  - Intramedullary rod insertion [Unknown]
  - Cardiomegaly [Unknown]
  - Vaginal haemorrhage [Unknown]
  - Joint swelling [Unknown]
  - Dyspepsia [Unknown]
  - Low turnover osteopathy [Unknown]
  - Musculoskeletal stiffness [Unknown]
  - Benign breast neoplasm [Unknown]
  - Tendonitis [Unknown]

NARRATIVE: CASE EVENT DATE: 19980421
